FAERS Safety Report 18231686 (Version 1)
Quarter: 2020Q3

REPORT INFORMATION
  Report Type: Spontaneous
  Country: US (occurrence: US)
  Receive Date: 20200903
  Receipt Date: 20200903
  Transmission Date: 20201103
  Serious: Yes (Other)
  Sender: FDA-Public Use
  Company Number: None

PATIENT
  Age: 90 Year
  Sex: Male
  Weight: 87 kg

DRUGS (9)
  1. PANTOPRAZOLE 40 MG [Concomitant]
     Active Substance: PANTOPRAZOLE SODIUM
  2. CEFTRIAXONE 6.25  MG [Concomitant]
  3. MULTIVITAMIN [Concomitant]
     Active Substance: VITAMINS
  4. CARVEDILOL 6.25 MG [Concomitant]
     Active Substance: CARVEDILOL
     Dates: start: 20200831
  5. DEXAMETHASONE 6 MG [Concomitant]
  6. HYDROXYZINE 25 MG [Concomitant]
     Active Substance: HYDROXYZINE HYDROCHLORIDE
  7. TRAMADOL 50 MG [Concomitant]
     Active Substance: TRAMADOL
  8. FUROSEMIDE 10MG/ML [Concomitant]
  9. REMDESIVIR. [Suspect]
     Active Substance: REMDESIVIR
     Indication: COVID-19
     Route: 042
     Dates: start: 20200831, end: 20200903

REACTIONS (3)
  - Alanine aminotransferase increased [None]
  - Aspartate aminotransferase increased [None]
  - Liver function test increased [None]

NARRATIVE: CASE EVENT DATE: 20200903
